FAERS Safety Report 14208018 (Version 1)
Quarter: 2017Q4

REPORT INFORMATION
  Report Type: Spontaneous
  Country: FR (occurrence: FR)
  Receive Date: 20171120
  Receipt Date: 20171120
  Transmission Date: 20180321
  Serious: Yes (Hospitalization, Disabling)
  Sender: FDA-Public Use
  Company Number: None

PATIENT
  Age: 18 Year
  Sex: Male
  Weight: 65 kg

DRUGS (7)
  1. DIPROSONE [Suspect]
     Active Substance: BETAMETHASONE DIPROPIONATE
     Indication: ECZEMA
     Route: 061
  2. EPSOM SALT [Concomitant]
     Active Substance: MAGNESIUM SULFATE
  3. DEAD SEA SALTS [Concomitant]
  4. SELENIUM [Concomitant]
     Active Substance: SELENIUM
  5. MAGNESIUM [Concomitant]
     Active Substance: MAGNESIUM
  6. SILICIA [Concomitant]
  7. MANGANESE [Concomitant]
     Active Substance: MANGANESE\MANGANESE CHLORIDE

REACTIONS (8)
  - Pruritus [None]
  - Skin fissures [None]
  - Unevaluable event [None]
  - Alopecia [None]
  - Skin exfoliation [None]
  - Nervous system disorder [None]
  - Erythema [None]
  - Skin burning sensation [None]

NARRATIVE: CASE EVENT DATE: 20161120
